FAERS Safety Report 7589622-7 (Version None)
Quarter: 2011Q3

REPORT INFORMATION
  Report Type: 
  Country: None (occurrence: None)
  Receive Date: 20110705
  Receipt Date: 20110606
  Transmission Date: 20111222
  Serious: Yes (Life-Threatening)
  Sender: FDA-Public Use
  Company Number: FR-WATSON-2011-08147

PATIENT
  Sex: Male

DRUGS (4)
  1. IBUPROFEN [Suspect]
     Indication: PRODUCT USED FOR UNKNOWN INDICATION
     Dosage: UNK
     Route: 048
     Dates: start: 20100531, end: 20100531
  2. AMOXICILLIN AND CLAVULANATE POTASSIUM [Suspect]
     Dosage: UNK
     Route: 058
     Dates: start: 20100825
  3. IBUPROFEN [Suspect]
     Dosage: 50 MG, SINGLE
     Route: 048
     Dates: start: 20100921, end: 20100921
  4. AMOXICILLIN AND CLAVULANATE POTASSIUM [Suspect]
     Indication: PRODUCT USED FOR UNKNOWN INDICATION
     Dosage: 2 DOSAGE FORM
     Route: 048
     Dates: start: 20100531, end: 20110531

REACTIONS (3)
  - SKIN TEST POSITIVE [None]
  - ALLERGY TEST POSITIVE [None]
  - ANGIOEDEMA [None]
